FAERS Safety Report 9306309 (Version 1)
Quarter: 2013Q2

REPORT INFORMATION
  Report Type: Spontaneous
  Country: US (occurrence: None)
  Receive Date: 20130513
  Receipt Date: 20130513
  Transmission Date: 20140414
  Serious: Yes (Other)
  Sender: FDA-Public Use
  Company Number: 2013035749

PATIENT
  Age: 17 Year
  Sex: Male

DRUGS (2)
  1. HIZENTRA [Suspect]
     Indication: CONGENITAL HYPOGAMMAGLOBULINAEMIA
     Route: 058
  2. HIZENTRA [Suspect]
     Indication: IMMUNODEFICIENCY
     Route: 058

REACTIONS (3)
  - Nephrolithiasis [None]
  - Flank pain [None]
  - Procedural pain [None]
